FAERS Safety Report 4627276-X (Version None)
Quarter: 2005Q2

REPORT INFORMATION
  Report Type: 
  Country: None (occurrence: None)
  Receive Date: 20050405
  Receipt Date: 20030717
  Transmission Date: 20051028
  Serious: Yes (Hospitalization)
  Sender: FDA-Public Use
  Company Number: CA-BOEHRINGER INGELHEIM PHARMACEUTICALS, INC.-2003-BP-04850BP

PATIENT
  Sex: Male
  Weight: 81 kg

DRUGS (10)
  1. MICARDIS [Suspect]
     Indication: CARDIOVASCULAR DISORDER
     Route: 048
     Dates: start: 20030207, end: 20030627
  2. MICARDIS [Suspect]
     Indication: CEREBROVASCULAR ACCIDENT PROPHYLAXIS
  3. RAMIPRIL [Suspect]
     Indication: PROPHYLAXIS
     Route: 048
     Dates: start: 20030207, end: 20030627
  4. RAMIPRIL [Suspect]
     Indication: CEREBROVASCULAR ACCIDENT PROPHYLAXIS
  5. ASPIRIN [Concomitant]
  6. EPOGEN [Concomitant]
  7. METOPROLOL TARTRATE [Concomitant]
  8. LEVOTHYROXINE [Concomitant]
  9. PRAVASTATIN [Concomitant]
  10. LORAZEPAM [Concomitant]

REACTIONS (1)
  - RENAL FAILURE ACUTE [None]
